FAERS Safety Report 6983114-1 (Version None)
Quarter: 2010Q3

REPORT INFORMATION
  Report Type: 
  Country: None (occurrence: None)
  Receive Date: 20100914
  Receipt Date: 20100528
  Transmission Date: 20110219
  Serious: Yes (Other)
  Sender: FDA-Public Use
  Company Number: US-PFIZER INC-2010067772

PATIENT
  Sex: Female

DRUGS (3)
  1. LYRICA [Suspect]
     Indication: NEURALGIA
     Dosage: 50 MG, 2X/DAY
     Route: 048
     Dates: start: 20100101
  2. CELEBREX [Concomitant]
     Indication: ARTHRITIS
     Dosage: 100 MG, 2X/DAY
     Route: 048
  3. VALSARTAN [Concomitant]
     Indication: HYPERTENSION
     Dosage: 12 MG, DAILY
     Route: 048

REACTIONS (1)
  - WEIGHT INCREASED [None]
